FAERS Safety Report 21599046 (Version 2)
Quarter: 2022Q4

REPORT INFORMATION
  Report Type: Report from Study
  Country: CN (occurrence: CN)
  Receive Date: 20221115
  Receipt Date: 20221125
  Transmission Date: 20230113
  Serious: Yes (Hospitalization)
  Sender: FDA-Public Use
  Company Number: CN-009507513-2211CHN003998

PATIENT
  Age: 37 Year
  Sex: Male

DRUGS (4)
  1. EMEND [Suspect]
     Active Substance: APREPITANT
     Indication: Cytomegalovirus infection
     Dosage: 1 CAPSULE, QD
     Route: 048
     Dates: start: 20220815, end: 20220823
  2. EMEND [Suspect]
     Active Substance: APREPITANT
     Dosage: 1 CAPSULE
     Route: 048
     Dates: start: 20220720, end: 20220728
  3. CILASTATIN SODIUM\IMIPENEM [Suspect]
     Active Substance: CILASTATIN SODIUM\IMIPENEM
     Dosage: 1 G, Q8H
     Route: 041
     Dates: start: 20220826, end: 20220901
  4. CILASTATIN SODIUM\IMIPENEM [Suspect]
     Active Substance: CILASTATIN SODIUM\IMIPENEM
     Dosage: 1 G, ONCE (ST)
     Route: 041
     Dates: start: 20220827, end: 20220827

REACTIONS (1)
  - Pneumonia [Recovering/Resolving]

NARRATIVE: CASE EVENT DATE: 20221021
